FAERS Safety Report 13376092 (Version 1)
Quarter: 2017Q1

REPORT INFORMATION
  Report Type: Spontaneous
  Country: US (occurrence: US)
  Receive Date: 20170328
  Receipt Date: 20170328
  Transmission Date: 20170429
  Serious: No
  Sender: FDA-Public Use
  Company Number: US-ASTELLAS-2016US050067

PATIENT
  Age: 56 Year
  Sex: Female

DRUGS (1)
  1. TACROLIMUS OINTMENT [Suspect]
     Active Substance: TACROLIMUS
     Indication: SKIN EXFOLIATION
     Dosage: 1/2 PEA SIZE AMOUNT, ONCE DAILY TO TWICE DAILY, AS NEEDED
     Route: 061
     Dates: start: 2013, end: 20161212

REACTIONS (7)
  - Application site pruritus [Recovered/Resolved]
  - Hyperaesthesia [Recovered/Resolved]
  - Application site pain [Recovered/Resolved]
  - Application site erythema [Recovered/Resolved]
  - Vision blurred [Recovered/Resolved]
  - Application site swelling [Recovered/Resolved]
  - Inappropriate schedule of drug administration [Unknown]

NARRATIVE: CASE EVENT DATE: 20141120
